FAERS Safety Report 18090185 (Version 1)
Quarter: 2020Q3

REPORT INFORMATION
  Report Type: Spontaneous
  Country: PT (occurrence: PT)
  Receive Date: 20200729
  Receipt Date: 20200729
  Transmission Date: 20201103
  Serious: Yes (Other)
  Sender: FDA-Public Use
  Company Number: PT-MYLANLABS-2020M1068404

PATIENT
  Age: 54 Year
  Sex: Female

DRUGS (4)
  1. CEFAZOLIN [Suspect]
     Active Substance: CEFAZOLIN
     Indication: HYSTERECTOMY
     Dosage: UNK
     Dates: start: 20191210, end: 20191210
  2. ROPIVACAINE. [Suspect]
     Active Substance: ROPIVACAINE HYDROCHLORIDE
     Indication: HYSTERECTOMY
     Dosage: UNK
     Route: 008
     Dates: start: 20191210, end: 20191210
  3. ONDANSETRON [Concomitant]
     Active Substance: ONDANSETRON
     Dosage: UNK
     Route: 042
  4. KETOROLAC [Concomitant]
     Active Substance: KETOROLAC TROMETHAMINE
     Dosage: UNK
     Route: 042

REACTIONS (5)
  - Rash [Recovered/Resolved]
  - Anaphylactic reaction [Recovered/Resolved]
  - Hypotension [Recovered/Resolved]
  - Tachycardia [Recovered/Resolved]
  - Laryngeal dyspnoea [Recovered/Resolved]

NARRATIVE: CASE EVENT DATE: 20191012
